FAERS Safety Report 8323214-7 (Version None)
Quarter: 2012Q2

REPORT INFORMATION
  Report Type: 
  Country: None (occurrence: None)
  Receive Date: 20120430
  Receipt Date: 20120425
  Transmission Date: 20120825
  Serious: Yes (Life-Threatening, Hospitalization)
  Sender: FDA-Public Use
  Company Number: US-B.I. PHARMACEUTICALS,INC./RIDGEFIELD-2012-BP-02278BP

PATIENT
  Sex: Female

DRUGS (22)
  1. LUMIGAN [Concomitant]
     Route: 031
  2. LASIX [Concomitant]
     Dosage: 40 MG
  3. XALATAN [Concomitant]
     Route: 031
  4. ZOFRAN [Concomitant]
  5. ZYRTEC [Concomitant]
     Dosage: 5 MG
     Route: 048
  6. CARDIZEM [Concomitant]
     Dosage: 240 MG
     Route: 048
  7. LATANOPROST [Concomitant]
  8. BENICAR [Concomitant]
     Dosage: 40 MG
  9. NORCO [Concomitant]
     Route: 048
  10. LIDODERM [Concomitant]
     Route: 061
  11. ALBUTEROL [Concomitant]
  12. XYZAL [Concomitant]
  13. ZOLOFT [Concomitant]
     Dosage: 25 MG
     Route: 048
  14. PRADAXA [Suspect]
     Indication: ATRIAL FIBRILLATION
     Dates: start: 20111228, end: 20120201
  15. XANAX [Concomitant]
     Route: 048
  16. ARICEPT [Concomitant]
     Dosage: 10 MG
     Route: 048
  17. MEGACE [Concomitant]
  18. MULTI-VITAMIN [Concomitant]
  19. PROTONIX [Concomitant]
     Route: 042
  20. NAPROSYN [Concomitant]
     Dosage: 50 MG
  21. CALTRATE WITH VITAMIN D [Concomitant]
  22. LIDOCAINE PATHY [Concomitant]

REACTIONS (6)
  - RENAL FAILURE ACUTE [None]
  - GASTROINTESTINAL HAEMORRHAGE [None]
  - SICK SINUS SYNDROME [None]
  - CARDIAC FAILURE ACUTE [None]
  - ATRIAL FIBRILLATION [None]
  - ANAEMIA [None]
